FAERS Safety Report 11468582 (Version 2)
Quarter: 2015Q4

REPORT INFORMATION
  Report Type: Spontaneous
  Country: US (occurrence: US)
  Receive Date: 20150908
  Receipt Date: 20151211
  Transmission Date: 20160304
  Serious: Yes (Hospitalization, Other)
  Sender: FDA-Public Use
  Company Number: US-GLAXOSMITHKLINE-US2015GSK126750

PATIENT
  Age: 62 Year
  Sex: Female

DRUGS (3)
  1. COREG CR [Suspect]
     Active Substance: CARVEDILOL PHOSPHATE
     Indication: ARRHYTHMIA
  2. COREG CR [Suspect]
     Active Substance: CARVEDILOL PHOSPHATE
     Indication: HYPERTENSION
  3. COREG CR [Suspect]
     Active Substance: CARVEDILOL PHOSPHATE
     Indication: CARDIOMYOPATHY

REACTIONS (1)
  - Clostridium difficile infection [Unknown]

NARRATIVE: CASE EVENT DATE: 20150819
